FAERS Safety Report 8348490-6 (Version None)
Quarter: 2012Q2

REPORT INFORMATION
  Report Type: 
  Country: None (occurrence: None)
  Receive Date: 20120509
  Receipt Date: 20120425
  Transmission Date: 20120825
  Serious: No
  Sender: FDA-Public Use
  Company Number: DE-MERCK-1203DEU00002

PATIENT
  Age: 56 Year
  Sex: Male
  Weight: 101 kg

DRUGS (10)
  1. JANUMET [Suspect]
     Indication: TYPE 2 DIABETES MELLITUS
     Route: 048
     Dates: start: 20111116, end: 20120101
  2. DICLOFENAC RESINATE [Concomitant]
     Indication: PAIN
     Route: 048
     Dates: start: 20110401
  3. JANUVIA [Suspect]
     Indication: TYPE 2 DIABETES MELLITUS
     Route: 048
     Dates: start: 20110101, end: 20111116
  4. DICLOFENAC RESINATE [Concomitant]
     Indication: MUSCULOSKELETAL DISCOMFORT
     Route: 048
     Dates: start: 20110401
  5. ZOCOR [Concomitant]
     Route: 048
  6. JANUMET [Suspect]
     Route: 048
     Dates: start: 20120101
  7. TAMSULOSIN HYDROCHLORIDE [Concomitant]
     Route: 065
  8. LISINOPRIL [Concomitant]
     Route: 048
  9. ALLOPURINOL [Concomitant]
     Route: 048
  10. METFORMIN HCL [Suspect]
     Indication: TYPE 2 DIABETES MELLITUS
     Route: 048
     Dates: start: 20090120

REACTIONS (2)
  - GAMMA-GLUTAMYLTRANSFERASE INCREASED [None]
  - LIPASE INCREASED [None]
